FAERS Safety Report 6762797-5 (Version None)
Quarter: 2010Q2

REPORT INFORMATION
  Report Type: 
  Country: None (occurrence: None)
  Receive Date: 20100609
  Receipt Date: 20100602
  Transmission Date: 20101027
  Serious: Yes (Hospitalization)
  Sender: FDA-Public Use
  Company Number: Z0004165A

PATIENT
  Sex: Female
  Weight: 63.5 kg

DRUGS (8)
  1. PAZOPANIB [Suspect]
     Indication: RENAL CELL CARCINOMA
     Route: 048
     Dates: start: 20091216
  2. PANTOZOL [Concomitant]
     Indication: PROPHYLAXIS
     Dosage: 20MG PER DAY
     Route: 048
     Dates: start: 20100506
  3. CITALOPRAM [Concomitant]
     Indication: DEPRESSION
     Dosage: 20MG PER DAY
     Route: 048
     Dates: start: 20100506
  4. FORTECORTIN [Concomitant]
     Dosage: 4MG PER DAY
     Route: 048
     Dates: start: 20100506
  5. CEFTRIAXON [Concomitant]
     Dosage: 2G PER DAY
     Route: 042
     Dates: start: 20100506, end: 20100515
  6. CIPRO [Concomitant]
     Dosage: 250MG TWICE PER DAY
     Route: 048
     Dates: start: 20100506, end: 20100515
  7. STEROFUNDIN [Concomitant]
     Dosage: 1000ML PER DAY
     Route: 042
     Dates: start: 20100506
  8. EMBOLEX [Concomitant]
     Indication: PROPHYLAXIS
     Dosage: 3000IU PER DAY
     Route: 058
     Dates: start: 20100506, end: 20100518

REACTIONS (1)
  - DEHYDRATION [None]
